FAERS Safety Report 25270982 (Version 1)
Quarter: 2025Q2

REPORT INFORMATION
  Report Type: Spontaneous
  Country: CN (occurrence: CN)
  Receive Date: 20250506
  Receipt Date: 20250506
  Transmission Date: 20250717
  Serious: Yes (Hospitalization, Other)
  Sender: BAXTER
  Company Number: CN-BAXTER-2025BAX014778

PATIENT
  Age: 27 Year
  Sex: Female
  Weight: 63 kg

DRUGS (113)
  1. CYCLOPHOSPHAMIDE [Suspect]
     Active Substance: CYCLOPHOSPHAMIDE
     Indication: Lymphodepletion
     Dosage: 800 MG, QD
     Route: 065
     Dates: start: 20250222, end: 20250224
  2. FLUDARABINE [Suspect]
     Active Substance: FLUDARABINE PHOSPHATE
     Indication: Lymphodepletion
     Dosage: 50 MG, QD (50 MG/DAY)
     Route: 065
     Dates: start: 20250222, end: 20250224
  3. PREDNISONE ACETATE [Concomitant]
     Active Substance: PREDNISONE ACETATE
     Indication: Systemic lupus erythematosus
     Route: 048
     Dates: start: 20250219, end: 20250219
  4. PREDNISONE ACETATE [Concomitant]
     Active Substance: PREDNISONE ACETATE
     Dosage: 5 MG, QD
     Route: 048
     Dates: start: 20250220, end: 20250224
  5. PREDNISONE ACETATE [Concomitant]
     Active Substance: PREDNISONE ACETATE
     Route: 048
     Dates: start: 20250223, end: 20250223
  6. PREDNISONE ACETATE [Concomitant]
     Active Substance: PREDNISONE ACETATE
     Route: 048
     Dates: start: 20250324, end: 20250324
  7. PREDNISONE ACETATE [Concomitant]
     Active Substance: PREDNISONE ACETATE
     Dosage: 5 MG, QD
     Route: 048
     Dates: start: 20250325, end: 20250325
  8. PREDNISONE ACETATE [Concomitant]
     Active Substance: PREDNISONE ACETATE
     Route: 048
     Dates: start: 20250325, end: 20250325
  9. PREDNISONE ACETATE [Concomitant]
     Active Substance: PREDNISONE ACETATE
     Route: 048
     Dates: start: 20250327, end: 20250327
  10. HYDROXYCHLOROQUINE SULFATE [Concomitant]
     Active Substance: HYDROXYCHLOROQUINE SULFATE
     Indication: Systemic lupus erythematosus
     Route: 048
     Dates: start: 20250219, end: 20250219
  11. HYDROXYCHLOROQUINE SULFATE [Concomitant]
     Active Substance: HYDROXYCHLOROQUINE SULFATE
     Dosage: 0.2 G, QD
     Route: 048
     Dates: start: 20250220, end: 20250224
  12. HYDROXYCHLOROQUINE SULFATE [Concomitant]
     Active Substance: HYDROXYCHLOROQUINE SULFATE
     Route: 048
     Dates: start: 20250325, end: 20250325
  13. HYDROXYCHLOROQUINE SULFATE [Concomitant]
     Active Substance: HYDROXYCHLOROQUINE SULFATE
     Route: 048
     Dates: start: 20250327, end: 20250327
  14. TOFACITINIB CITRATE [Concomitant]
     Active Substance: TOFACITINIB CITRATE
     Indication: Disease progression
     Route: 048
     Dates: start: 20250220, end: 20250220
  15. TOFACITINIB CITRATE [Concomitant]
     Active Substance: TOFACITINIB CITRATE
     Dosage: 5 MG, QD
     Route: 048
     Dates: start: 20250220, end: 20250221
  16. TOFACITINIB CITRATE [Concomitant]
     Active Substance: TOFACITINIB CITRATE
     Route: 048
     Dates: start: 20250221, end: 20250221
  17. TOFACITINIB CITRATE [Concomitant]
     Active Substance: TOFACITINIB CITRATE
     Route: 048
     Dates: start: 20250317, end: 20250317
  18. TOFACITINIB CITRATE [Concomitant]
     Active Substance: TOFACITINIB CITRATE
     Route: 048
     Dates: start: 20250318, end: 20250326
  19. TOFACITINIB CITRATE [Concomitant]
     Active Substance: TOFACITINIB CITRATE
     Dosage: 5 MG, QD
     Route: 048
     Dates: start: 20250327, end: 20250327
  20. SULFAMETHOXAZOLE [Concomitant]
     Active Substance: SULFAMETHOXAZOLE
     Indication: Infection prophylaxis
     Route: 048
     Dates: start: 20250222, end: 20250222
  21. SULFAMETHOXAZOLE [Concomitant]
     Active Substance: SULFAMETHOXAZOLE
     Route: 048
     Dates: start: 20250223, end: 20250314
  22. SULFAMETHOXAZOLE [Concomitant]
     Active Substance: SULFAMETHOXAZOLE
     Dosage: 2 TABLETS, QD
     Route: 048
     Dates: start: 20250315, end: 20250315
  23. Nysfungin [Concomitant]
     Indication: Infection prophylaxis
     Dosage: 500 WU, BID
     Route: 048
     Dates: start: 20250222, end: 20250222
  24. Nysfungin [Concomitant]
     Dosage: 500 WU, TID
     Route: 048
     Dates: start: 20250223
  25. Nysfungin [Concomitant]
     Dosage: 500 WU, ONCE
     Route: 048
     Dates: start: 20250222, end: 20250222
  26. Nysfungin [Concomitant]
     Dosage: 500 WU, ONCE (IN VITRO)
     Route: 065
     Dates: start: 20250224, end: 20250224
  27. AZTREONAM [Concomitant]
     Active Substance: AZTREONAM
     Indication: Infection prophylaxis
     Route: 042
     Dates: start: 20250223, end: 20250223
  28. AZTREONAM [Concomitant]
     Active Substance: AZTREONAM
     Dosage: 1 G, BID
     Route: 042
     Dates: start: 20250223, end: 20250223
  29. AZTREONAM [Concomitant]
     Active Substance: AZTREONAM
     Route: 042
     Dates: start: 20250224, end: 20250227
  30. AZTREONAM [Concomitant]
     Active Substance: AZTREONAM
     Dosage: 1 G, QD
     Route: 042
     Dates: start: 20250228, end: 20250228
  31. FLUCONAZOLE [Concomitant]
     Active Substance: FLUCONAZOLE
     Indication: Infection prophylaxis
     Route: 048
     Dates: start: 20250224, end: 20250224
  32. FLUCONAZOLE [Concomitant]
     Active Substance: FLUCONAZOLE
     Route: 048
     Dates: start: 20250224, end: 20250224
  33. FLUCONAZOLE [Concomitant]
     Active Substance: FLUCONAZOLE
     Dosage: 150 MG, QD
     Route: 048
     Dates: start: 20250225, end: 20250307
  34. LINEZOLID [Concomitant]
     Active Substance: LINEZOLID
     Indication: Infection prophylaxis
     Route: 048
     Dates: start: 20250307, end: 20250307
  35. LINEZOLID [Concomitant]
     Active Substance: LINEZOLID
     Route: 048
     Dates: start: 20250308, end: 20250308
  36. POSACONAZOLE [Concomitant]
     Active Substance: POSACONAZOLE
     Indication: Infection prophylaxis
     Route: 048
     Dates: start: 20250308, end: 20250308
  37. POSACONAZOLE [Concomitant]
     Active Substance: POSACONAZOLE
     Dosage: 0.3 G, QD
     Route: 048
     Dates: start: 20250309, end: 20250327
  38. MEROPENEM [Concomitant]
     Active Substance: MEROPENEM
     Indication: Infection prophylaxis
     Route: 042
     Dates: start: 20250308, end: 20250308
  39. MEROPENEM [Concomitant]
     Active Substance: MEROPENEM
     Dosage: 1 G, QD
     Route: 042
     Dates: start: 20250308, end: 20250308
  40. MEROPENEM [Concomitant]
     Active Substance: MEROPENEM
     Route: 042
     Dates: start: 20250309, end: 20250314
  41. MEROPENEM [Concomitant]
     Active Substance: MEROPENEM
     Dosage: 1 G, QD
     Route: 042
     Dates: start: 20250315, end: 20250315
  42. LINEZOLID [Concomitant]
     Active Substance: LINEZOLID
     Indication: Infection prophylaxis
     Route: 042
     Dates: start: 20250308, end: 20250308
  43. LINEZOLID [Concomitant]
     Active Substance: LINEZOLID
     Route: 042
     Dates: start: 20250309, end: 20250312
  44. LINEZOLID [Concomitant]
     Active Substance: LINEZOLID
     Route: 042
     Dates: start: 20250313, end: 20250313
  45. ACYCLOVIR [Concomitant]
     Active Substance: ACYCLOVIR
     Indication: Infection prophylaxis
     Dosage: 0.4 G, BID
     Route: 042
     Dates: start: 20250308, end: 20250308
  46. ACYCLOVIR [Concomitant]
     Active Substance: ACYCLOVIR
     Route: 042
     Dates: start: 20250309, end: 20250314
  47. ACYCLOVIR [Concomitant]
     Active Substance: ACYCLOVIR
     Dosage: 0.4 G, BID
     Route: 042
     Dates: start: 20250315, end: 20250315
  48. CASPOFUNGIN ACETATE [Concomitant]
     Active Substance: CASPOFUNGIN ACETATE
     Indication: Infection prophylaxis
     Route: 042
     Dates: start: 20250308, end: 20250308
  49. CASPOFUNGIN ACETATE [Concomitant]
     Active Substance: CASPOFUNGIN ACETATE
     Dosage: 100 MG, QD
     Route: 042
     Dates: start: 20250309, end: 20250315
  50. TORSEMIDE [Concomitant]
     Active Substance: TORSEMIDE
     Indication: Disease progression
     Route: 042
     Dates: start: 20250222, end: 20250222
  51. TORSEMIDE [Concomitant]
     Active Substance: TORSEMIDE
     Route: 042
     Dates: start: 20250223, end: 20250223
  52. TORSEMIDE [Concomitant]
     Active Substance: TORSEMIDE
     Route: 042
     Dates: start: 20250307, end: 20250307
  53. TORSEMIDE [Concomitant]
     Active Substance: TORSEMIDE
     Route: 042
     Dates: start: 20250308, end: 20250308
  54. TORSEMIDE [Concomitant]
     Active Substance: TORSEMIDE
     Route: 042
     Dates: start: 20250309, end: 20250309
  55. TORSEMIDE [Concomitant]
     Active Substance: TORSEMIDE
     Route: 042
     Dates: start: 20250309, end: 20250309
  56. TORSEMIDE [Concomitant]
     Active Substance: TORSEMIDE
     Route: 042
     Dates: start: 20250310, end: 20250310
  57. TORSEMIDE [Concomitant]
     Active Substance: TORSEMIDE
     Route: 042
     Dates: start: 20250311, end: 20250311
  58. TORSEMIDE [Concomitant]
     Active Substance: TORSEMIDE
     Route: 042
     Dates: start: 20250312, end: 20250312
  59. TORSEMIDE [Concomitant]
     Active Substance: TORSEMIDE
     Route: 042
     Dates: start: 20250312, end: 20250312
  60. TORSEMIDE [Concomitant]
     Active Substance: TORSEMIDE
     Route: 042
     Dates: start: 20250313, end: 20250313
  61. TORSEMIDE [Concomitant]
     Active Substance: TORSEMIDE
     Route: 042
     Dates: start: 20250314, end: 20250314
  62. TORSEMIDE [Concomitant]
     Active Substance: TORSEMIDE
     Route: 042
     Dates: start: 20250314, end: 20250314
  63. TORSEMIDE [Concomitant]
     Active Substance: TORSEMIDE
     Route: 042
     Dates: start: 20250315, end: 20250315
  64. TORSEMIDE [Concomitant]
     Active Substance: TORSEMIDE
     Route: 042
     Dates: start: 20250316, end: 20250316
  65. TORSEMIDE [Concomitant]
     Active Substance: TORSEMIDE
     Route: 042
     Dates: start: 20250318, end: 20250318
  66. TORSEMIDE [Concomitant]
     Active Substance: TORSEMIDE
     Route: 042
     Dates: start: 20250320, end: 20250320
  67. TORSEMIDE [Concomitant]
     Active Substance: TORSEMIDE
     Route: 042
     Dates: start: 20250325, end: 20250325
  68. TORSEMIDE [Concomitant]
     Active Substance: TORSEMIDE
     Route: 042
     Dates: start: 20250325, end: 20250325
  69. TORSEMIDE [Concomitant]
     Active Substance: TORSEMIDE
     Route: 042
     Dates: start: 20250325, end: 20250325
  70. TORSEMIDE [Concomitant]
     Active Substance: TORSEMIDE
     Route: 042
     Dates: start: 20250326, end: 20250326
  71. TORSEMIDE [Concomitant]
     Active Substance: TORSEMIDE
     Route: 042
     Dates: start: 20250326, end: 20250326
  72. TORSEMIDE [Concomitant]
     Active Substance: TORSEMIDE
     Route: 042
     Dates: start: 20250327, end: 20250327
  73. IBUPROFEN [Concomitant]
     Active Substance: IBUPROFEN
     Indication: Pyrexia
     Route: 065
     Dates: start: 20250227
  74. IBUPROFEN [Concomitant]
     Active Substance: IBUPROFEN
     Indication: Analgesic therapy
     Route: 048
     Dates: start: 20250302, end: 20250302
  75. IBUPROFEN [Concomitant]
     Active Substance: IBUPROFEN
     Route: 048
     Dates: start: 20250304, end: 20250304
  76. IBUPROFEN [Concomitant]
     Active Substance: IBUPROFEN
     Route: 048
     Dates: start: 20250304, end: 20250304
  77. IBUPROFEN [Concomitant]
     Active Substance: IBUPROFEN
     Route: 048
     Dates: start: 20250305, end: 20250305
  78. IBUPROFEN [Concomitant]
     Active Substance: IBUPROFEN
     Route: 048
     Dates: start: 20250306, end: 20250306
  79. IBUPROFEN [Concomitant]
     Active Substance: IBUPROFEN
     Route: 048
     Dates: start: 20250307, end: 20250307
  80. IBUPROFEN [Concomitant]
     Active Substance: IBUPROFEN
     Route: 048
     Dates: start: 20250327
  81. ACETAMINOPHEN [Concomitant]
     Active Substance: ACETAMINOPHEN
     Indication: Pyrexia
     Route: 048
     Dates: start: 20250306, end: 20250306
  82. TOCILIZUMAB [Concomitant]
     Active Substance: TOCILIZUMAB
     Indication: Immunosuppressant drug therapy
     Route: 042
     Dates: start: 20250307, end: 20250307
  83. TOCILIZUMAB [Concomitant]
     Active Substance: TOCILIZUMAB
     Route: 042
     Dates: start: 20250308, end: 20250308
  84. HUMAN IMMUNOGLOBULIN G [Concomitant]
     Active Substance: HUMAN IMMUNOGLOBULIN G
     Indication: Supportive care
     Route: 042
     Dates: start: 20250308, end: 20250308
  85. HUMAN IMMUNOGLOBULIN G [Concomitant]
     Active Substance: HUMAN IMMUNOGLOBULIN G
     Route: 042
     Dates: start: 20250309, end: 20250309
  86. CEFOPERAZONE SODIUM\SULBACTAM SODIUM [Concomitant]
     Active Substance: CEFOPERAZONE SODIUM\SULBACTAM SODIUM
     Indication: Infection prophylaxis
     Route: 042
     Dates: start: 20250227, end: 20250227
  87. CEFOPERAZONE SODIUM\SULBACTAM SODIUM [Concomitant]
     Active Substance: CEFOPERAZONE SODIUM\SULBACTAM SODIUM
     Dosage: 1.5 G, QD
     Route: 042
     Dates: start: 20250227, end: 20250227
  88. CEFOPERAZONE SODIUM\SULBACTAM SODIUM [Concomitant]
     Active Substance: CEFOPERAZONE SODIUM\SULBACTAM SODIUM
     Route: 042
     Dates: start: 20250228, end: 20250307
  89. CEFOPERAZONE SODIUM\SULBACTAM SODIUM [Concomitant]
     Active Substance: CEFOPERAZONE SODIUM\SULBACTAM SODIUM
     Dosage: 1.5 G, QD
     Route: 042
     Dates: start: 20250308, end: 20250308
  90. CEFOPERAZONE SODIUM\SULBACTAM SODIUM [Concomitant]
     Active Substance: CEFOPERAZONE SODIUM\SULBACTAM SODIUM
     Route: 042
     Dates: start: 20250316, end: 20250316
  91. CEFOPERAZONE SODIUM\SULBACTAM SODIUM [Concomitant]
     Active Substance: CEFOPERAZONE SODIUM\SULBACTAM SODIUM
     Dosage: 1.5 G, QD
     Route: 042
     Dates: start: 20250316, end: 20250316
  92. CEFOPERAZONE SODIUM\SULBACTAM SODIUM [Concomitant]
     Active Substance: CEFOPERAZONE SODIUM\SULBACTAM SODIUM
     Dosage: 1.5 G, QD
     Route: 042
     Dates: start: 20250317, end: 20250317
  93. POTASSIUM CHLORIDE [Concomitant]
     Active Substance: POTASSIUM CHLORIDE
     Indication: Mineral supplementation
     Route: 048
     Dates: start: 20250317, end: 20250317
  94. CEFDINIR [Concomitant]
     Active Substance: CEFDINIR
     Indication: Infection prophylaxis
     Dosage: 0.1 G, BID
     Route: 048
     Dates: start: 20250318, end: 20250318
  95. CEFDINIR [Concomitant]
     Active Substance: CEFDINIR
     Dosage: 0.1 G, TID
     Route: 048
     Dates: start: 20250319, end: 20250319
  96. CEFDINIR [Concomitant]
     Active Substance: CEFDINIR
     Dosage: 0.1 G, BID
     Route: 048
     Dates: start: 20250320, end: 20250320
  97. GRANULOCYTE COLONY-STIMULATING FACTOR NOS [Concomitant]
     Active Substance: GRANULOCYTE COLONY-STIMULATING FACTOR NOS
     Indication: White blood cell count decreased
     Route: 058
     Dates: start: 20250319, end: 20250319
  98. GRANULOCYTE COLONY-STIMULATING FACTOR NOS [Concomitant]
     Active Substance: GRANULOCYTE COLONY-STIMULATING FACTOR NOS
     Route: 058
     Dates: start: 20250324, end: 20250324
  99. OXYCODONE AND ACETAMINOPHEN [Concomitant]
     Active Substance: ACETAMINOPHEN\OXYCODONE HYDROCHLORIDE
     Indication: Gastrointestinal pain
     Route: 048
     Dates: start: 20250315, end: 20250315
  100. FEBUXOSTAT [Concomitant]
     Active Substance: FEBUXOSTAT
     Indication: Blood uric acid increased
     Route: 048
     Dates: start: 20250315, end: 20250315
  101. FEBUXOSTAT [Concomitant]
     Active Substance: FEBUXOSTAT
     Dosage: 200 MG, QD
     Route: 048
     Dates: start: 20250316, end: 20250318
  102. SIMETHICONE (DIMETHICONE) [Concomitant]
     Active Substance: DIMETHICONE
     Indication: Flatulence
     Route: 048
     Dates: start: 20250313, end: 20250313
  103. SIMETHICONE (DIMETHICONE) [Concomitant]
     Active Substance: DIMETHICONE
     Indication: Faecal disimpaction
  104. Si mo tang [Concomitant]
     Indication: Flatulence
     Route: 048
     Dates: start: 20250312, end: 20250312
  105. Si mo tang [Concomitant]
     Indication: Faecal disimpaction
  106. PROMETHAZINE HYDROCHLORIDE [Concomitant]
     Active Substance: PROMETHAZINE HYDROCHLORIDE
     Route: 065
     Dates: start: 20250227
  107. METHYLPREDNISOLONE SODIUM SUCCINATE [Concomitant]
     Active Substance: METHYLPREDNISOLONE SODIUM SUCCINATE
     Indication: Systemic lupus erythematosus
     Route: 042
     Dates: start: 20250325
  108. METHYLPREDNISOLONE SODIUM SUCCINATE [Concomitant]
     Active Substance: METHYLPREDNISOLONE SODIUM SUCCINATE
     Route: 042
     Dates: start: 20250325
  109. METHYLPREDNISOLONE SODIUM SUCCINATE [Concomitant]
     Active Substance: METHYLPREDNISOLONE SODIUM SUCCINATE
     Route: 042
     Dates: start: 20250326
  110. METHYLPREDNISOLONE SODIUM SUCCINATE [Concomitant]
     Active Substance: METHYLPREDNISOLONE SODIUM SUCCINATE
     Route: 042
     Dates: start: 20250327
  111. MYCOPHENOLATE MOFETIL [Concomitant]
     Active Substance: MYCOPHENOLATE MOFETIL
     Indication: Systemic lupus erythematosus
     Route: 048
     Dates: start: 20250325
  112. MYCOPHENOLATE MOFETIL [Concomitant]
     Active Substance: MYCOPHENOLATE MOFETIL
     Route: 048
     Dates: start: 20250326
  113. MYCOPHENOLATE MOFETIL [Concomitant]
     Active Substance: MYCOPHENOLATE MOFETIL
     Route: 048
     Dates: start: 20250327

REACTIONS (24)
  - Cytokine release syndrome [Unknown]
  - Portal vein dilatation [Unknown]
  - Myelosuppression [Unknown]
  - Platelet count decreased [Recovering/Resolving]
  - White blood cell count decreased [Unknown]
  - Neutrophil count decreased [Unknown]
  - Lymphocyte count decreased [Unknown]
  - Red blood cell count decreased [Unknown]
  - Haemoglobin decreased [Unknown]
  - Full blood count decreased [Unknown]
  - Pyrexia [Recovered/Resolved]
  - Pericardial effusion [Unknown]
  - Hepatic lesion [Unknown]
  - Splenomegaly [Unknown]
  - Hepatic mass [Unknown]
  - Pelvic fluid collection [Unknown]
  - Abdominal distension [Unknown]
  - Vasodilatation [Unknown]
  - Lung opacity [Unknown]
  - Chest discomfort [Recovering/Resolving]
  - Vomiting [Unknown]
  - Hepatomegaly [Unknown]
  - Dyspnoea [Recovering/Resolving]
  - Pleural effusion [Unknown]

NARRATIVE: CASE EVENT DATE: 20250222
